FAERS Safety Report 18317913 (Version 2)
Quarter: 2020Q4

REPORT INFORMATION
  Report Type: Report from Study
  Country: JP (occurrence: JP)
  Receive Date: 20200928
  Receipt Date: 20201224
  Transmission Date: 20210113
  Serious: No
  Sender: FDA-Public Use
  Company Number: JP-ALXN-A202013712AA

PATIENT
  Age: 43 Year
  Sex: Male

DRUGS (8)
  1. FAMOTIDINE. [Concomitant]
     Active Substance: FAMOTIDINE
     Indication: PROPHYLAXIS
     Dosage: 20 MG, QD
     Route: 048
     Dates: start: 2014
  2. MIGSIS [Concomitant]
     Active Substance: LOMERIZINE HYDROCHLORIDE
     Indication: MIGRAINE
     Dosage: 5 MG, PRN
     Route: 048
     Dates: start: 20191022
  3. STRENSIQ [Suspect]
     Active Substance: ASFOTASE ALFA
     Indication: HYPOPHOSPHATASIA
     Dosage: 1 MG/KG, TIW
     Route: 058
     Dates: start: 20181107, end: 20181218
  4. STRENSIQ [Suspect]
     Active Substance: ASFOTASE ALFA
     Dosage: 1.3 MG/KG, TIW
     Route: 058
     Dates: start: 20181219
  5. CELECOX [Concomitant]
     Active Substance: CELECOXIB
     Indication: HYPOPHOSPHATASIA
     Dosage: 100 MG, QD
     Route: 048
     Dates: start: 2014
  6. MOHRUS [Concomitant]
     Active Substance: KETOPROFEN
     Indication: HYPOPHOSPHATASIA
     Dosage: 40 MG, DAILY
     Dates: start: 2014
  7. EDIROL [Concomitant]
     Active Substance: ELDECALCITOL
     Indication: HYPOPHOSPHATASIA
     Dosage: 0.75 ?G, QD
     Route: 048
     Dates: start: 2014
  8. PREDONINE [Concomitant]
     Active Substance: PREDNISOLONE
     Indication: HYPOPHOSPHATASIA
     Dosage: 5 MG, QD
     Route: 048
     Dates: start: 2014

REACTIONS (2)
  - Migraine [Unknown]
  - Bone density decreased [Not Recovered/Not Resolved]

NARRATIVE: CASE EVENT DATE: 20200318
